FAERS Safety Report 6435026-X (Version None)
Quarter: 2009Q4

REPORT INFORMATION
  Report Type: 
  Country: None (occurrence: None)
  Receive Date: 20091110
  Receipt Date: 20091029
  Transmission Date: 20100525
  Serious: Yes (Other)
  Sender: FDA-Public Use
  Company Number: PHHY2009IE47485

PATIENT
  Sex: Female

DRUGS (2)
  1. RASILEZ [Suspect]
     Route: 048
  2. THIAZIDES [Suspect]

REACTIONS (1)
  - HYPERNATRAEMIA [None]
